FAERS Safety Report 10329833 (Version 1)
Quarter: 2014Q3

REPORT INFORMATION
  Report Type: Spontaneous
  Country: CH (occurrence: CH)
  Receive Date: 20140721
  Receipt Date: 20140721
  Transmission Date: 20150326
  Serious: Yes (Hospitalization)
  Sender: FDA-Public Use
  Company Number: CH-PFIZER INC-2014199137

PATIENT
  Age: 85 Year
  Sex: Female

DRUGS (17)
  1. SINTROM [Concomitant]
     Active Substance: ACENOCOUMAROL
     Indication: ATRIAL FIBRILLATION
     Dosage: UNK
     Route: 048
  2. CALCIMAGON-D3 [Concomitant]
     Active Substance: CALCIUM\CHOLECALCIFEROL
     Indication: VITAMIN SUPPLEMENTATION
     Dosage: 500 MG, 1X/DAY
     Route: 048
     Dates: start: 20140502
  3. TRITTICO [Interacting]
     Active Substance: TRAZODONE HYDROCHLORIDE
     Indication: AGITATION
     Dosage: 50 MG, 1X/DAY
     Route: 048
     Dates: start: 20140427, end: 20140429
  4. FLAGYL [Suspect]
     Active Substance: METRONIDAZOLE\METRONIDAZOLE HYDROCHLORIDE
     Indication: CHOLECYSTITIS
     Dosage: 500 MG, 3X/DAY
     Route: 048
     Dates: start: 20140427, end: 20140429
  5. POTASSIUM CHLORIDE W/SODIUM CHLORIDE [Concomitant]
     Active Substance: POTASSIUM CHLORIDE\SODIUM CHLORIDE
     Indication: HYPOKALAEMIA
     Dosage: 0.9%, 20 MMOL, 1X/DAY
     Route: 041
     Dates: start: 20140427, end: 20140429
  6. PIPERACILLIN/TAZOBACTAM [Suspect]
     Active Substance: PIPERACILLIN SODIUM\TAZOBACTAM SODIUM
     Indication: CHOLECYSTITIS
     Dosage: 4.5 G, 3X/DAY
     Route: 041
     Dates: start: 20140429, end: 20140509
  7. POTASSIUM CHLORIDE. [Concomitant]
     Active Substance: POTASSIUM CHLORIDE
     Dosage: 30 MMOL, 2X/DAY
     Route: 048
     Dates: start: 20140509, end: 20140511
  8. DILZEM RETARD [Suspect]
     Active Substance: DILTIAZEM
     Indication: ATRIAL FIBRILLATION
     Dosage: 120 MG, 2X/DAY
     Route: 048
     Dates: start: 2003, end: 20140429
  9. DILZEM RETARD [Interacting]
     Active Substance: DILTIAZEM
     Dosage: 90 MG, 2X/DAY
     Route: 048
     Dates: start: 20140430, end: 20140501
  10. POTASSIUM CHLORIDE. [Concomitant]
     Active Substance: POTASSIUM CHLORIDE
     Dosage: 30 MMOL, 1X/DAY
     Route: 048
     Dates: start: 20140512, end: 20140515
  11. ROCEPHINE [Suspect]
     Active Substance: CEFTRIAXONE SODIUM
     Indication: CHOLECYSTITIS
     Dosage: 2 G, 1X/DAY
     Route: 041
     Dates: start: 20140427, end: 20140429
  12. CLEXANE [Suspect]
     Active Substance: ENOXAPARIN SODIUM
     Indication: ATRIAL FIBRILLATION
     Dosage: 60 MG, 2X/DAY
     Route: 058
     Dates: start: 20140502, end: 20140509
  13. POTASSIUM CHLORIDE. [Concomitant]
     Active Substance: POTASSIUM CHLORIDE
     Indication: HYPOKALAEMIA
     Dosage: 30 MMOL, 3X/DAY
     Route: 048
     Dates: start: 20140429, end: 20140501
  14. DAFALGAN [Concomitant]
     Active Substance: ACETAMINOPHEN
     Dosage: 1 G, 2X/DAY
     Route: 048
     Dates: start: 20140509, end: 20140509
  15. LAXOBERON [Concomitant]
     Active Substance: SODIUM PICOSULFATE
     Indication: CONSTIPATION
     Dosage: 10 MG, 1X/DAY
     Route: 048
     Dates: start: 20140502, end: 20140505
  16. LAXOBERON [Concomitant]
     Active Substance: SODIUM PICOSULFATE
     Dosage: 10 MG, 1X/DAY, IN RESERVE
     Route: 048
     Dates: start: 20140506, end: 20140515
  17. EBIXA [Concomitant]
     Active Substance: MEMANTINE HYDROCHLORIDE
     Indication: DEMENTIA ALZHEIMER^S TYPE
     Dosage: 20 MG, 1X/DAY
     Route: 048

REACTIONS (10)
  - Bradycardia [Recovered/Resolved]
  - Hypotension [Recovered/Resolved]
  - Cholecystitis acute [Unknown]
  - Hypokalaemia [Recovered/Resolved]
  - Respiratory disorder [Recovered/Resolved]
  - Drug interaction [Recovered/Resolved]
  - Renal failure acute [Unknown]
  - Faecaloma [Unknown]
  - Rash maculo-papular [Recovered/Resolved]
  - Sepsis [Unknown]

NARRATIVE: CASE EVENT DATE: 20140424
